FAERS Safety Report 24719141 (Version 1)
Quarter: 2024Q4

REPORT INFORMATION
  Report Type: Other
  Country: FR (occurrence: FR)
  Receive Date: 20241210
  Receipt Date: 20241210
  Transmission Date: 20250115
  Serious: Yes (Hospitalization)
  Sender: Atnahs Healthcare
  Company Number: None

PATIENT
  Age: 32 Year
  Sex: Male

DRUGS (7)
  1. DIAZEPAM [Suspect]
     Active Substance: DIAZEPAM
     Indication: Product used for unknown indication
     Dosage: 10CP DAILY
     Route: 048
  2. COCAINE [Suspect]
     Active Substance: COCAINE
     Indication: Product used for unknown indication
     Dosage: 3G/DAY
     Route: 042
     Dates: start: 2006
  3. 3-METHYLMETHCATHINONE [Suspect]
     Active Substance: 3-METHYLMETHCATHINONE
     Indication: Product used for unknown indication
     Dosage: UP TO 10G OVER 72 HOURS
     Route: 042
  4. HEROIN [Suspect]
     Active Substance: DIAMORPHINE
     Indication: Product used for unknown indication
     Dosage: UNK
     Route: 065
     Dates: start: 2006
  5. SKENAN [Suspect]
     Active Substance: MORPHINE SULFATE
     Indication: Product used for unknown indication
     Dosage: 500MG/DAY
     Route: 042
  6. METHADONE [Suspect]
     Active Substance: METHADONE HYDROCHLORIDE
     Indication: Product used for unknown indication
     Dosage: 170MG/DAY
     Route: 048
     Dates: start: 2024
  7. METHADONE [Suspect]
     Active Substance: METHADONE HYDROCHLORIDE
     Dosage: UNK
     Route: 042
     Dates: end: 2024

REACTIONS (4)
  - Drug detoxification [Recovered/Resolved]
  - Drug abuse [Not Recovered/Not Resolved]
  - Intentional product misuse [Not Recovered/Not Resolved]
  - High risk sexual behaviour [Not Recovered/Not Resolved]

NARRATIVE: CASE EVENT DATE: 20240325
